FAERS Safety Report 7457235-3 (Version None)
Quarter: 2011Q2

REPORT INFORMATION
  Report Type: 
  Country: None (occurrence: None)
  Receive Date: 20110502
  Receipt Date: 20110502
  Transmission Date: 20111010
  Serious: Yes (Life-Threatening, Hospitalization)
  Sender: FDA-Public Use
  Company Number: None

PATIENT
  Age: 43 Year
  Sex: Male
  Weight: 99.7913 kg

DRUGS (2)
  1. SIMPONI [Suspect]
     Indication: ANKYLOSING SPONDYLITIS
     Dosage: INJ 1 A MONTH
     Dates: start: 20090701
  2. SIMPONI [Suspect]
     Indication: ANKYLOSING SPONDYLITIS
     Dosage: INJ 1 A MONTH
     Dates: start: 20090801

REACTIONS (2)
  - IMPAIRED WORK ABILITY [None]
  - IMMUNE SYSTEM DISORDER [None]
